FAERS Safety Report 17227604 (Version 1)
Quarter: 2020Q1

REPORT INFORMATION
  Report Type: Spontaneous
  Country: GB (occurrence: GB)
  Receive Date: 20200103
  Receipt Date: 20200103
  Transmission Date: 20200409
  Serious: Yes (Other)
  Sender: FDA-Public Use
  Company Number: GB-ASTRAZENECA-2019SF88315

PATIENT
  Age: 38 Year
  Sex: Female
  Weight: 57.1 kg

DRUGS (1)
  1. EMOZUL [Suspect]
     Active Substance: ESOMEPRAZOLE MAGNESIUM
     Indication: HIATUS HERNIA
     Route: 048
     Dates: start: 201811, end: 201901

REACTIONS (3)
  - Breast pain [Recovered/Resolved with Sequelae]
  - Breast swelling [Recovered/Resolved with Sequelae]
  - Breast tenderness [Recovered/Resolved with Sequelae]

NARRATIVE: CASE EVENT DATE: 20181101
